FAERS Safety Report 7046249-3 (Version None)
Quarter: 2010Q4

REPORT INFORMATION
  Report Type: 
  Country: None (occurrence: None)
  Receive Date: 20101014
  Receipt Date: 20101007
  Transmission Date: 20110411
  Serious: Yes (Other)
  Sender: FDA-Public Use
  Company Number: A0885459A

PATIENT
  Sex: Female

DRUGS (2)
  1. HYCAMTIN [Suspect]
     Indication: UTERINE CANCER
     Dosage: .25MG FOUR TIMES PER DAY
     Route: 048
     Dates: start: 20100701, end: 20100901
  2. VOTRIENT [Concomitant]

REACTIONS (3)
  - CARBOHYDRATE ANTIGEN 125 INCREASED [None]
  - DRUG INEFFECTIVE [None]
  - HEPATIC NEOPLASM [None]
